FAERS Safety Report 11358946 (Version 1)
Quarter: 2015Q3

REPORT INFORMATION
  Report Type: Spontaneous
  Country: US (occurrence: None)
  Receive Date: 20150807
  Receipt Date: 20150807
  Transmission Date: 20151125
  Serious: Yes (Disabling)
  Sender: FDA-Public Use
  Company Number: None

PATIENT
  Age: 81 Year
  Sex: Male
  Weight: 95.26 kg

DRUGS (7)
  1. GAPENTIN [Concomitant]
  2. BENICAR [Concomitant]
     Active Substance: OLMESARTAN MEDOXOMIL
  3. OHMEGA 3 VITAMINE D [Concomitant]
  4. PLAVIX [Concomitant]
     Active Substance: CLOPIDOGREL BISULFATE
  5. BOTOX [Suspect]
     Active Substance: ONABOTULINUMTOXINA
     Indication: MIGRAINE
  6. BRINTELLIX [Concomitant]
     Active Substance: VORTIOXETINE HYDROBROMIDE
  7. ASPRIN [Concomitant]
     Active Substance: ASPIRIN

REACTIONS (11)
  - VIIth nerve paralysis [None]
  - Vision blurred [None]
  - Dysphonia [None]
  - Headache [None]
  - Drug ineffective [None]
  - Oropharyngeal pain [None]
  - Eyelid ptosis [None]
  - Confusional state [None]
  - Diplopia [None]
  - Dysphagia [None]
  - Visual brightness [None]

NARRATIVE: CASE EVENT DATE: 20130715
